FAERS Safety Report 18438735 (Version 3)
Quarter: 2021Q4

REPORT INFORMATION
  Report Type: Spontaneous
  Country: GB (occurrence: GB)
  Receive Date: 20201028
  Receipt Date: 20211223
  Transmission Date: 20220304
  Serious: Yes (Other)
  Sender: FDA-Public Use
  Company Number: GB-BIOGEN-2019BI00715500

PATIENT
  Sex: Male

DRUGS (4)
  1. DALFAMPRIDINE [Suspect]
     Active Substance: DALFAMPRIDINE
     Indication: Multiple sclerosis
     Dosage: 1ST DRUG DELIVERY WITH HOMECARE DELIVERY COMPANY WAS STATED IN SOURCE DOCUMENT AS FEB-2019
     Route: 048
  2. DALFAMPRIDINE [Suspect]
     Active Substance: DALFAMPRIDINE
     Route: 048
  3. DALFAMPRIDINE [Suspect]
     Active Substance: DALFAMPRIDINE
     Route: 048
  4. DALFAMPRIDINE [Suspect]
     Active Substance: DALFAMPRIDINE
     Route: 048

REACTIONS (4)
  - Seizure [Unknown]
  - Prescribed underdose [Unknown]
  - Balance disorder [Unknown]
  - Insomnia [Unknown]
